FAERS Safety Report 24143484 (Version 2)
Quarter: 2024Q3

REPORT INFORMATION
  Report Type: Report from Study
  Country: ES (occurrence: ES)
  Receive Date: 20240727
  Receipt Date: 20240810
  Transmission Date: 20241016
  Serious: Yes (Hospitalization)
  Sender: ABBVIE
  Company Number: ES-ABBVIE-5849309

PATIENT
  Age: 60 Year
  Sex: Male
  Weight: 64 kg

DRUGS (2)
  1. CARBIDOPA\LEVODOPA [Suspect]
     Active Substance: CARBIDOPA\LEVODOPA
     Indication: Parkinson^s disease
     Route: 050
     Dates: start: 20190718
  2. CARBIDOPA\LEVODOPA [Suspect]
     Active Substance: CARBIDOPA\LEVODOPA

REACTIONS (8)
  - Fluid intake reduced [Not Recovered/Not Resolved]
  - Unevaluable event [Not Recovered/Not Resolved]
  - Device dislocation [Recovered/Resolved]
  - Feeding disorder [Not Recovered/Not Resolved]
  - Decreased appetite [Unknown]
  - General physical health deterioration [Recovering/Resolving]
  - Asthenia [Unknown]
  - Dysphagia [Unknown]

NARRATIVE: CASE EVENT DATE: 20240715
